FAERS Safety Report 7288024-0 (Version None)
Quarter: 2011Q1

REPORT INFORMATION
  Report Type: 
  Country: None (occurrence: None)
  Receive Date: 20110211
  Receipt Date: 20110131
  Transmission Date: 20110831
  Serious: Yes (Other)
  Sender: FDA-Public Use
  Company Number: PHHY2011DE10645

PATIENT
  Sex: Male

DRUGS (3)
  1. ZOMETA [Suspect]
     Indication: BONE DISORDER
     Route: 042
  2. ELIGARD [Concomitant]
  3. VITAMIN D [Concomitant]

REACTIONS (3)
  - OSTEOSCLEROSIS [None]
  - BONE PAIN [None]
  - BONE DISORDER [None]
